FAERS Safety Report 18621812 (Version 4)
Quarter: 2021Q1

REPORT INFORMATION
  Report Type: Spontaneous
  Country: US (occurrence: US)
  Receive Date: 20201216
  Receipt Date: 20210326
  Transmission Date: 20210419
  Serious: No
  Sender: FDA-Public Use
  Company Number: US-TEVA-2020-US-1859487

PATIENT
  Age: 54 Year

DRUGS (1)
  1. RIZATRIPTAN BENZOATE. [Suspect]
     Active Substance: RIZATRIPTAN BENZOATE
     Indication: MIGRAINE
     Route: 065
     Dates: start: 2019

REACTIONS (4)
  - Product taste abnormal [Unknown]
  - Product packaging difficult to open [Unknown]
  - Migraine [Unknown]
  - Wrong technique in product usage process [Unknown]
